FAERS Safety Report 22034968 (Version 1)
Quarter: 2023Q1

REPORT INFORMATION
  Report Type: Spontaneous
  Country: None (occurrence: US)
  Receive Date: 20230224
  Receipt Date: 20230224
  Transmission Date: 20230417
  Serious: Yes (Life-Threatening, Disabling, Other)
  Sender: FDA-Public Use
  Company Number: US-Xttrium Laboratories, Inc-2138360

PATIENT
  Age: 54 Year
  Sex: Female
  Weight: 33.636 kg

DRUGS (1)
  1. MEGESTROL ACETATE [Suspect]
     Active Substance: MEGESTROL ACETATE
     Route: 048

REACTIONS (9)
  - Non-alcoholic fatty liver [Not Recovered/Not Resolved]
  - Neuropathy peripheral [Not Recovered/Not Resolved]
  - Adrenocortical insufficiency acute [Not Recovered/Not Resolved]
  - Neoplasm malignant [Unknown]
  - Brain neoplasm [Unknown]
  - Cerebrovascular accident [Recovered/Resolved]
  - Hypertension [Unknown]
  - Oedema [Unknown]
  - Adrenocortical insufficiency acute [Unknown]
